FAERS Safety Report 25999265 (Version 1)
Quarter: 2025Q4

REPORT INFORMATION
  Report Type: Spontaneous
  Country: GB (occurrence: GB)
  Receive Date: 20251105
  Receipt Date: 20251105
  Transmission Date: 20260118
  Serious: Yes (Other)
  Sender: TAKEDA
  Company Number: None

PATIENT
  Age: 27 Year
  Sex: Female

DRUGS (1)
  1. LISDEXAMFETAMINE DIMESYLATE [Suspect]
     Active Substance: LISDEXAMFETAMINE DIMESYLATE
     Indication: Attention deficit hyperactivity disorder
     Dosage: 30 MILLIGRAM, QD
     Dates: start: 20250929, end: 20251016

REACTIONS (6)
  - Vomiting [Not Recovered/Not Resolved]
  - Anxiety [Recovering/Resolving]
  - Decreased appetite [Not Recovered/Not Resolved]
  - Dysphagia [Not Recovered/Not Resolved]
  - Feeling jittery [Not Recovered/Not Resolved]
  - Flatulence [Recovering/Resolving]

NARRATIVE: CASE EVENT DATE: 20251014
